FAERS Safety Report 5646499-4 (Version None)
Quarter: 2008Q1

REPORT INFORMATION
  Report Type: 
  Country: None (occurrence: None)
  Receive Date: 20080228
  Receipt Date: 20080228
  Transmission Date: 20080703
  Serious: Yes (Hospitalization)
  Sender: FDA-Public Use
  Company Number: None

PATIENT
  Sex: Female
  Weight: 63.5036 kg

DRUGS (16)
  1. NOVOLIN 70/30 [Suspect]
     Indication: DIABETES MELLITUS
     Dosage: 25UNITS BID PRIOR TO ADMISSION
  2. DIGOXIN [Concomitant]
  3. PHOSLO [Concomitant]
  4. HYDRALAZINE HCL [Concomitant]
  5. COREG [Concomitant]
  6. PRILOSEC [Concomitant]
  7. FOLIC ACID [Concomitant]
  8. PLAVIX [Concomitant]
  9. COLACE [Concomitant]
  10. CLONIDINE [Concomitant]
  11. COZAAR [Concomitant]
  12. LASIX [Concomitant]
  13. DEMADEX [Concomitant]
  14. EPOGEN [Concomitant]
  15. NITROGLYCERIN [Concomitant]
  16. HUMULIN 70/30 [Concomitant]

REACTIONS (5)
  - BLOOD GLUCOSE DECREASED [None]
  - DIZZINESS [None]
  - LOSS OF CONSCIOUSNESS [None]
  - ROAD TRAFFIC ACCIDENT [None]
  - TREATMENT NONCOMPLIANCE [None]
